FAERS Safety Report 8281905-0 (Version None)
Quarter: 2012Q2

REPORT INFORMATION
  Report Type: 
  Country: None (occurrence: None)
  Receive Date: 20120413
  Receipt Date: 20120412
  Transmission Date: 20120825
  Serious: Yes (Hospitalization, Other)
  Sender: FDA-Public Use
  Company Number: PHFR2011IE06089

PATIENT
  Sex: Female

DRUGS (10)
  1. CLOZARIL [Suspect]
     Indication: SCHIZOPHRENIA
     Dosage: 200 MG IN NIGHT AND 100 IN MORNING
     Route: 048
     Dates: start: 20040114
  2. PROCYCLIDINE HYDROCHLORIDE 2MG TAB [Concomitant]
  3. NICORETTE [Concomitant]
  4. TRAMADOL HCL [Concomitant]
  5. NICOTINE [Concomitant]
  6. CIPROFLOXACIN HYDROCHLORIDE [Concomitant]
  7. PAROXETINE HCL [Concomitant]
  8. ESOMEPRAZOLE MAGNESIUM [Concomitant]
  9. FLUTICASONE PROPIONATE/SALMETEROL [Concomitant]
  10. GALFER [Concomitant]

REACTIONS (5)
  - BLADDER TRANSITIONAL CELL CARCINOMA [None]
  - HAEMOPTYSIS [None]
  - HAEMOGLOBIN DECREASED [None]
  - HAEMATOMA [None]
  - LUNG NEOPLASM MALIGNANT [None]
